FAERS Safety Report 24463432 (Version 1)
Quarter: 2024Q4

REPORT INFORMATION
  Report Type: Report from Study
  Country: US (occurrence: US)
  Receive Date: 20241018
  Receipt Date: 20241018
  Transmission Date: 20250114
  Serious: No
  Sender: ROCHE
  Company Number: US-ROCHE-3317133

PATIENT
  Age: 72 Year
  Sex: Female
  Weight: 102.0 kg

DRUGS (6)
  1. XOLAIR [Suspect]
     Active Substance: OMALIZUMAB
     Indication: Asthma
     Dosage: LAST INJECTION DATE: 24/MAY/2019, 15/DEC/2022,22/FEB/2024.
     Route: 058
  2. XOLAIR [Suspect]
     Active Substance: OMALIZUMAB
  3. ALBUTEROL SULFATE [Concomitant]
     Active Substance: ALBUTEROL SULFATE
  4. ALLEGRA ALLERGY [Concomitant]
     Active Substance: FEXOFENADINE HYDROCHLORIDE
  5. AZELASTINE [Concomitant]
     Active Substance: AZELASTINE
  6. MONTELUKAST SODIUM [Concomitant]
     Active Substance: MONTELUKAST SODIUM

REACTIONS (4)
  - Nasal congestion [Unknown]
  - Throat tightness [Unknown]
  - Panic disorder [Unknown]
  - Urticaria [Unknown]
